FAERS Safety Report 7712655-4 (Version None)
Quarter: 2011Q3

REPORT INFORMATION
  Report Type: 
  Country: None (occurrence: None)
  Receive Date: 20110826
  Receipt Date: 20110824
  Transmission Date: 20111222
  Serious: Yes (Hospitalization)
  Sender: FDA-Public Use
  Company Number: FR-MERCK-1108FRA00095

PATIENT
  Age: 19 Year
  Sex: Female

DRUGS (1)
  1. PRIMAXIN [Suspect]
     Indication: ILEITIS
     Route: 042
     Dates: start: 20110627, end: 20110630

REACTIONS (3)
  - VEIN DISORDER [None]
  - LOCAL REACTION [None]
  - LYMPHANGITIS [None]
